FAERS Safety Report 13885150 (Version 1)
Quarter: 2017Q3

REPORT INFORMATION
  Report Type: Report from Study
  Country: None (occurrence: US)
  Receive Date: 20170821
  Receipt Date: 20170821
  Transmission Date: 20171127
  Serious: Yes (Other)
  Sender: FDA-Public Use
  Company Number: US-ABBVIE-17K-163-1994966-00

PATIENT
  Age: 72 Year
  Sex: Female

DRUGS (1)
  1. HUMIRA [Suspect]
     Active Substance: ADALIMUMAB
     Indication: PSORIATIC ARTHROPATHY
     Route: 058
     Dates: start: 20170227

REACTIONS (4)
  - Escherichia urinary tract infection [Unknown]
  - Urinary incontinence [Unknown]
  - End stage renal disease [Unknown]
  - Blood urine present [Unknown]

NARRATIVE: CASE EVENT DATE: 2017
